FAERS Safety Report 5241363-7 (Version None)
Quarter: 2007Q1

REPORT INFORMATION
  Report Type: 
  Country: None (occurrence: None)
  Receive Date: 20070220
  Receipt Date: 20070215
  Transmission Date: 20070707
  Serious: Yes (Other)
  Sender: FDA-Public Use
  Company Number: CA-SP-2007-00182

PATIENT
  Age: 26 Year
  Sex: Male

DRUGS (3)
  1. TUBERSOL [Suspect]
     Indication: TUBERCULIN TEST
     Route: 023
     Dates: start: 20070109
  2. VENTOLIN [Concomitant]
  3. REACTINE [Concomitant]

REACTIONS (4)
  - HYPERSENSITIVITY [None]
  - INJECTION SITE REACTION [None]
  - PRURITUS [None]
  - URTICARIA LOCALISED [None]
